FAERS Safety Report 14845235 (Version 1)
Quarter: 2018Q2

REPORT INFORMATION
  Report Type: Spontaneous
  Country: DE (occurrence: DE)
  Receive Date: 20180504
  Receipt Date: 20180504
  Transmission Date: 20180711
  Serious: Yes (Hospitalization)
  Sender: FDA-Public Use
  Company Number: DE-CONCORDIA PHARMACEUTICALS INC.-E2B_00011451

PATIENT
  Age: 54 Year
  Sex: Male
  Weight: 89 kg

DRUGS (15)
  1. LEVOTHYROXINE SODIUM. [Concomitant]
     Active Substance: LEVOTHYROXINE SODIUM
     Dosage: 150 MICROG, 1-0-0-0, TABLETTEN
     Route: 048
  2. POSACONAZOL [Concomitant]
     Active Substance: POSACONAZOLE
     Dosage: 100 MG, 0-3-0-0, TABLETTEN
     Route: 048
  3. POLYSTYROLSULFONAT [Concomitant]
     Dosage: 15 G, 1-0-0-0, BEUTEL
     Route: 048
  4. PREDNISOLONE. [Suspect]
     Active Substance: PREDNISOLONE
     Dosage: 20 MG, 1-0-0-0, TABLETTEN
     Route: 048
  5. ACICLOVIR [Concomitant]
     Active Substance: ACYCLOVIR
     Dosage: 800 MG, 1-1-1-0, TABLETTEN
     Route: 048
  6. PANTOPRAZOL [Concomitant]
     Active Substance: PANTOPRAZOLE SODIUM
     Dosage: 40 MG, 0-1-0-0, TABLETTEN
     Route: 048
  7. METOPROLOL. [Concomitant]
     Active Substance: METOPROLOL
     Dosage: 47.5 MG, 1-0-1-0, TABLETTEN
     Route: 048
  8. SIMETICON [Concomitant]
     Dosage: 80 MG, BEDARF, KAUTABLETTEN
     Route: 048
  9. BUDESONIDE. [Concomitant]
     Active Substance: BUDESONIDE
     Dosage: 3 MG, 1-1-1-0, KAPSELN
     Route: 048
  10. TACROLIMUS. [Concomitant]
     Active Substance: TACROLIMUS
     Dosage: 7.5 MG, 1-0-1-0, TABLETTEN
     Route: 048
  11. SULFAMETHOXAZOL/TRIMETHOPRIM [Concomitant]
     Active Substance: SULFAMETHOXAZOLE\TRIMETHOPRIM
     Dosage: 800/160 MG, NACH SCHEMA, TABLETTEN
     Route: 048
  12. MAGNESIUM [Concomitant]
     Active Substance: MAGNESIUM
     Dosage: 375 MG, 1-1-1-1, TABLETTEN
     Route: 048
  13. ROMIPLOSTIM [Concomitant]
     Active Substance: ROMIPLOSTIM
     Dosage: 500 MICROG / WOCHE, 1-0-0-0, INJEKTIONS-/INFUSIONSLOSUNG
     Route: 058
  14. TAMSULOSIN [Concomitant]
     Active Substance: TAMSULOSIN
     Dosage: 0.4 MG, 1-0-0-0, TABLETTEN
     Route: 048
  15. TORASEMID [Concomitant]
     Active Substance: TORSEMIDE
     Dosage: 10 MG, BEDARF, TABLETTEN
     Route: 048

REACTIONS (2)
  - Hyperglycaemia [Unknown]
  - Primary myelofibrosis [Unknown]
